FAERS Safety Report 9536434 (Version 1)
Quarter: 2013Q2

REPORT INFORMATION
  Report Type: Spontaneous
  Country: US (occurrence: None)
  Receive Date: 20130503
  Receipt Date: 20130503
  Transmission Date: 20140414
  Serious: Yes (Other)
  Sender: FDA-Public Use
  Company Number: 1000043114

PATIENT
  Age: 76 Year
  Sex: Male

DRUGS (8)
  1. DALIRESP (ROFLUMILAST) (500 MICROGRAM, TABLETS) [Suspect]
     Indication: CHRONIC OBSTRUCTIVE PULMONARY DISEASE
     Route: 048
     Dates: start: 201302
  2. CYMBALTA (DULOXETINE HYDROCHLORIDE) [Concomitant]
  3. HYDRALAZINE [Concomitant]
  4. ISOSORBIDE [Concomitant]
  5. OMEPRAZOLE [Concomitant]
  6. ALPRAZOLAM [Concomitant]
  7. WELLBUTRIN (BUPROPION HYDROCHLORIDE) [Concomitant]
  8. CRESTOR (ROSUVASTATIN CALCIUM) [Concomitant]

REACTIONS (2)
  - Nausea [None]
  - Decreased appetite [None]
